FAERS Safety Report 9079216 (Version 1)
Quarter: 2013Q1

REPORT INFORMATION
  Report Type: Spontaneous
  Country: DE (occurrence: DE)
  Receive Date: 20130130
  Receipt Date: 20130130
  Transmission Date: 20140127
  Serious: Yes (Hospitalization)
  Sender: FDA-Public Use
  Company Number: DE-009507513-1301DEU012660

PATIENT
  Age: 46 Year
  Sex: Male

DRUGS (2)
  1. JANUMET [Suspect]
     Indication: TYPE 2 DIABETES MELLITUS
     Dosage: UNK
     Route: 048
     Dates: start: 20091203, end: 201301
  2. BERLINSULIN H BASAL [Concomitant]
     Dosage: UNK
     Dates: start: 20120312

REACTIONS (1)
  - Drug-induced liver injury [Recovered/Resolved]
